FAERS Safety Report 10672483 (Version 2)
Quarter: 2016Q4

REPORT INFORMATION
  Report Type: Spontaneous
  Country: US (occurrence: US)
  Receive Date: 20141223
  Receipt Date: 20161212
  Transmission Date: 20170206
  Serious: Yes (Other)
  Sender: FDA-Public Use
  Company Number: US-ELI_LILLY_AND_COMPANY-US201412006872

PATIENT
  Age: 42 Year
  Sex: Female
  Weight: 79.5 kg

DRUGS (10)
  1. CYMBALTA [Suspect]
     Active Substance: DULOXETINE HYDROCHLORIDE
     Indication: DEPRESSION
     Dosage: UNK, UNKNOWN
     Route: 065
     Dates: start: 201204, end: 201301
  2. CYMBALTA [Suspect]
     Active Substance: DULOXETINE HYDROCHLORIDE
     Indication: PAIN
     Dosage: 90 MG, QD
     Route: 065
  3. BUSPIRONE [Concomitant]
     Active Substance: BUSPIRONE HYDROCHLORIDE
     Indication: ANXIETY
     Dosage: 10 MG, TID
     Route: 048
  4. VENLAFAXINE [Concomitant]
     Active Substance: VENLAFAXINE HYDROCHLORIDE
     Dosage: 37.5 MG,TWO EVERY DAY FOR 7 DAYS
     Route: 048
  5. CYCLOBENZAPRIN HYDROCHLORIDE [Concomitant]
     Active Substance: CYCLOBENZAPRINE HYDROCHLORIDE
     Indication: PRODUCT USED FOR UNKNOWN INDICATION
     Dosage: 10 MG, TID AS NEEDED
     Route: 048
  6. CYMBALTA [Suspect]
     Active Substance: DULOXETINE HYDROCHLORIDE
     Indication: POST-TRAUMATIC STRESS DISORDER
     Dosage: 60 MG, QD
     Route: 065
  7. VENLAFAXINE [Concomitant]
     Active Substance: VENLAFAXINE HYDROCHLORIDE
     Indication: MOOD ALTERED
     Dosage: 37.5 MG, ONE EVERY DAY FOR 7 DAYS
     Route: 048
  8. CYMBALTA [Suspect]
     Active Substance: DULOXETINE HYDROCHLORIDE
     Indication: FIBROMYALGIA
     Dosage: UNK, UNKNOWN
     Route: 065
  9. CYMBALTA [Suspect]
     Active Substance: DULOXETINE HYDROCHLORIDE
     Indication: GENERALISED ANXIETY DISORDER
  10. VENLAFAXINE [Concomitant]
     Active Substance: VENLAFAXINE HYDROCHLORIDE
     Dosage: 37.5 MG, FOUR EVERY DAY
     Route: 048

REACTIONS (28)
  - Hallucination [Unknown]
  - Nightmare [Unknown]
  - Anxiety [Unknown]
  - Dizziness [Unknown]
  - Dysphoria [Unknown]
  - Confusional state [Unknown]
  - Hyperhidrosis [Unknown]
  - Suicidal ideation [Unknown]
  - Fatigue [Unknown]
  - Tinnitus [Unknown]
  - Nausea [Unknown]
  - Vision blurred [Unknown]
  - Tremor [Unknown]
  - Diarrhoea [Unknown]
  - Vertigo [Unknown]
  - Seizure [Unknown]
  - Sensory disturbance [Unknown]
  - Feeling of despair [Unknown]
  - Sleep disorder [Unknown]
  - Insomnia [Unknown]
  - Panic disorder [Unknown]
  - Agitation [Unknown]
  - Irritability [Unknown]
  - Drug withdrawal syndrome [Unknown]
  - Paraesthesia [Unknown]
  - Headache [Unknown]
  - Affect lability [Unknown]
  - Depressed mood [Unknown]

NARRATIVE: CASE EVENT DATE: 201301
